FAERS Safety Report 7986188-4 (Version None)
Quarter: 2011Q4

REPORT INFORMATION
  Report Type: 
  Country: None (occurrence: None)
  Receive Date: 20111216
  Receipt Date: 20111213
  Transmission Date: 20120403
  Serious: Yes (Life-Threatening, Hospitalization, Other)
  Sender: FDA-Public Use
  Company Number: US-GLAXOSMITHKLINE-A0940386A

PATIENT
  Age: 58 Year
  Sex: Male
  Weight: 115.9 kg

DRUGS (9)
  1. FUROSEMIDE [Concomitant]
  2. GABAPENTIN [Concomitant]
  3. HYDROXYZINE HYDROCHLORIDE [Concomitant]
  4. VOTRIENT [Suspect]
     Indication: PRODUCT USED FOR UNKNOWN INDICATION
     Dosage: 800MG PER DAY
     Route: 048
     Dates: start: 20110724, end: 20111015
  5. AMBIEN [Concomitant]
  6. PROCHLOROPERAZINE [Concomitant]
  7. OXYCODONE HCL [Concomitant]
  8. MORPHINE SULFATE [Concomitant]
  9. OXYCONTIN [Concomitant]

REACTIONS (11)
  - HEADACHE [None]
  - FATIGUE [None]
  - RASH [None]
  - NAUSEA [None]
  - BLOOD PRESSURE INCREASED [None]
  - VOMITING [None]
  - CONFUSIONAL STATE [None]
  - ALOPECIA [None]
  - HYPERTENSIVE CRISIS [None]
  - VISION BLURRED [None]
  - ABDOMINAL DISCOMFORT [None]
